FAERS Safety Report 9960989 (Version 1)
Quarter: 2014Q1

REPORT INFORMATION
  Report Type: Report from Study
  Country: US (occurrence: US)
  Receive Date: 20140305
  Receipt Date: 20140305
  Transmission Date: 20141002
  Serious: No
  Sender: FDA-Public Use
  Company Number: US-ABBVIE-13P-163-1109620-00

PATIENT
  Age: 58 Year
  Sex: Female

DRUGS (14)
  1. HUMIRA [Suspect]
     Indication: RHEUMATOID ARTHRITIS
  2. DICYCLOMINE [Concomitant]
     Indication: PRODUCT USED FOR UNKNOWN INDICATION
  3. FAMVIR [Concomitant]
     Indication: PRODUCT USED FOR UNKNOWN INDICATION
  4. FISH OIL [Concomitant]
     Indication: SUPPLEMENTATION THERAPY
  5. FLEXERIL [Concomitant]
     Indication: MUSCLE SPASMS
  6. IMITREX [Concomitant]
     Indication: MIGRAINE
  7. METHOTREXATE [Concomitant]
     Indication: RHEUMATOID ARTHRITIS
  8. MULTIVITAMIN [Concomitant]
     Indication: VITAMIN SUPPLEMENTATION
  9. PERCOCET [Concomitant]
     Indication: PAIN
  10. PREDNISONE [Concomitant]
     Indication: RHEUMATOID ARTHRITIS
  11. SIMVASTATIN [Concomitant]
     Indication: BLOOD CHOLESTEROL INCREASED
  12. TRAZODONE [Concomitant]
     Indication: INSOMNIA
  13. TUMS [Concomitant]
     Indication: DYSPEPSIA
  14. VITAMIN D3 [Concomitant]
     Indication: VITAMIN SUPPLEMENTATION

REACTIONS (1)
  - Injection site bruising [Recovered/Resolved]
